FAERS Safety Report 8073152-2 (Version None)
Quarter: 2012Q1

REPORT INFORMATION
  Report Type: 
  Country: None (occurrence: None)
  Receive Date: 20120126
  Receipt Date: 20120116
  Transmission Date: 20120608
  Serious: Yes (Death)
  Sender: FDA-Public Use
  Company Number: ES-ELI_LILLY_AND_COMPANY-ES201201004604

PATIENT
  Sex: Female
  Weight: 90 kg

DRUGS (9)
  1. ALLOPURINOL [Concomitant]
     Dosage: 100 MG, QD
     Route: 048
     Dates: end: 20111229
  2. CIDINE [Concomitant]
     Dosage: UNK
     Route: 048
     Dates: end: 20111229
  3. FORTEO [Suspect]
     Indication: OSTEOPOROSIS
     Dosage: 20 UG, QD
     Route: 058
     Dates: start: 20100827, end: 20111229
  4. PARACETAMOL W/TRAMADOL HYDROCHLORIDE [Concomitant]
     Indication: PAIN
     Dosage: 325 MG, BID
     Route: 048
     Dates: end: 20111229
  5. CITALOPRAM HYDROBROMIDE [Concomitant]
     Indication: DEPRESSION
     Dosage: 30 MG, QD
     Route: 048
     Dates: end: 20111229
  6. VESICARE [Concomitant]
     Indication: FLUID RETENTION
     Dosage: 5 MG, QD
     Route: 048
     Dates: end: 20111229
  7. NATECAL D [Concomitant]
     Indication: OSTEOPOROSIS
     Dosage: UNK, QD
     Route: 048
     Dates: end: 20111229
  8. ENALAPRIL [Concomitant]
     Indication: HYPERTENSION
     Dosage: 10 MG, QD
     Route: 048
     Dates: end: 20111229
  9. LORAZEPAM [Concomitant]
     Indication: INSOMNIA
     Dosage: 1 MG, QD
     Route: 048
     Dates: end: 20111229

REACTIONS (1)
  - DEATH [None]
